FAERS Safety Report 8340868-X (Version None)
Quarter: 2012Q1

REPORT INFORMATION
  Report Type: 
  Country: None (occurrence: None)
  Receive Date: 20120329
  Receipt Date: 20090417
  Transmission Date: 20120608
  Serious: Yes (Other)
  Sender: FDA-Public Use
  Company Number: PHEH2009US03257

PATIENT
  Age: 67 Year
  Sex: Male

DRUGS (11)
  1. ASPIRIN [Concomitant]
  2. SIMVASTATIN [Concomitant]
  3. EXELON [Suspect]
     Dosage: 4.6 MG, TRANSDERMAL
     Route: 062
     Dates: start: 20090201
  4. METOPROLOL TARTRATE [Concomitant]
  5. MILK THISTLE [Concomitant]
  6. METFORMIN HCL [Concomitant]
  7. NICOTINIC ACID [Concomitant]
  8. BENAZEPRIL HYDROCHLORIDE [Concomitant]
  9. PRILOSEC [Concomitant]
  10. FISH OIL (FISH OIL) [Concomitant]
  11. COQ10 (UBIDECARENONE) [Concomitant]

REACTIONS (4)
  - DEPRESSION [None]
  - DECREASED APPETITE [None]
  - DRUG EFFECT DECREASED [None]
  - ASTHENIA [None]
